FAERS Safety Report 6999578-3 (Version None)
Quarter: 2010Q3

REPORT INFORMATION
  Report Type: 
  Country: None (occurrence: None)
  Receive Date: 20100920
  Receipt Date: 20100412
  Transmission Date: 20110219
  Serious: Yes (Hospitalization)
  Sender: FDA-Public Use
  Company Number: US-ASTRAZENECA-2010SE02022

PATIENT
  Age: 56 Year
  Sex: Male
  Weight: 122.9 kg

DRUGS (6)
  1. SEROQUEL [Suspect]
     Route: 048
     Dates: start: 20070701
  2. SEROQUEL [Suspect]
     Route: 048
     Dates: start: 20071001
  3. SEROQUEL [Suspect]
     Route: 048
     Dates: start: 20071201
  4. DEPAKOTE ER [Concomitant]
     Dosage: 500 MG PO QHS FOR 7 DAYS + PO BID
     Route: 048
     Dates: start: 20070701
  5. CELEXA [Concomitant]
     Dates: start: 20071001
  6. PAXIL [Concomitant]
     Dates: start: 20071201

REACTIONS (2)
  - DIABETES MELLITUS INADEQUATE CONTROL [None]
  - DIABETIC KETOACIDOSIS [None]
